FAERS Safety Report 10054964 (Version 2)
Quarter: 2014Q2

REPORT INFORMATION
  Report Type: Spontaneous
  Country: IT (occurrence: IT)
  Receive Date: 20140402
  Receipt Date: 20140512
  Transmission Date: 20141212
  Serious: Yes (Other)
  Sender: FDA-Public Use
  Company Number: PHHY2014IT038543

PATIENT
  Age: 77 Year
  Sex: Male

DRUGS (2)
  1. LEVOFLOXACIN SANDOZ [Suspect]
     Indication: URODYNAMICS MEASUREMENT
     Dosage: 500 MG, QD
     Route: 048
     Dates: start: 20131104, end: 20131109
  2. AVODART [Suspect]
     Dosage: 1 DF, QD
     Route: 048
     Dates: start: 20131101, end: 20131130

REACTIONS (3)
  - Localised oedema [Recovering/Resolving]
  - Dyskinesia [Recovering/Resolving]
  - Tendonitis [Recovering/Resolving]
